FAERS Safety Report 15203323 (Version 1)
Quarter: 2018Q3

REPORT INFORMATION
  Report Type: Spontaneous
  Country: US (occurrence: US)
  Receive Date: 20180627
  Receipt Date: 20180627
  Transmission Date: 20181010
  Serious: Yes (Other)
  Sender: FDA-Public Use
  Company Number: None

PATIENT
  Age: 33 Year
  Sex: Female
  Weight: 56.25 kg

DRUGS (1)
  1. FLUTICASONE PROP 50 MCG SPRAY [Suspect]
     Active Substance: FLUTICASONE PROPIONATE
     Indication: NASAL CONGESTION
     Dosage: ?          QUANTITY:1 SPRAY(S);OTHER ROUTE:INSTILL (NOSE)?

REACTIONS (5)
  - Headache [None]
  - Device malfunction [None]
  - Nasal discomfort [None]
  - Tinnitus [None]
  - Eye pain [None]

NARRATIVE: CASE EVENT DATE: 20180420
